FAERS Safety Report 6013887-6 (Version None)
Quarter: 2008Q4

REPORT INFORMATION
  Report Type: 
  Country: None (occurrence: None)
  Receive Date: 20081219
  Receipt Date: 20081212
  Transmission Date: 20090506
  Serious: Yes (Other)
  Sender: FDA-Public Use
  Company Number: CH-BRISTOL-MYERS SQUIBB COMPANY-14445324

PATIENT
  Age: 28 Year
  Sex: Male

DRUGS (1)
  1. ERBITUX [Suspect]
     Indication: RECTAL CANCER STAGE IV
     Route: 041
     Dates: start: 20081209

REACTIONS (1)
  - LEUKOENCEPHALOPATHY [None]
